FAERS Safety Report 22294501 (Version 1)
Quarter: 2023Q2

REPORT INFORMATION
  Report Type: Spontaneous
  Country: US (occurrence: US)
  Receive Date: 20230508
  Receipt Date: 20230508
  Transmission Date: 20230721
  Serious: Yes (Other)
  Sender: FDA-Public Use
  Company Number: US-ASTELLAS-2022US041770

PATIENT
  Age: 79 Year
  Sex: Male

DRUGS (6)
  1. LEXISCAN [Suspect]
     Active Substance: REGADENOSON
     Indication: Cardiac stress test
     Dosage: 0.4 MG, UNKNOWN FREQ. (DOSE ADMINISTERED OVER 10 SECONDS)
     Route: 042
     Dates: start: 20221024, end: 20221024
  2. LEXISCAN [Suspect]
     Active Substance: REGADENOSON
     Indication: Cardiac stress test
     Dosage: 0.4 MG, UNKNOWN FREQ. (DOSE ADMINISTERED OVER 10 SECONDS)
     Route: 042
     Dates: start: 20221024, end: 20221024
  3. LEXISCAN [Suspect]
     Active Substance: REGADENOSON
     Indication: Cardiac stress test
     Dosage: 0.4 MG, UNKNOWN FREQ. (DOSE ADMINISTERED OVER 10 SECONDS)
     Route: 042
     Dates: start: 20221024, end: 20221024
  4. LEXISCAN [Suspect]
     Active Substance: REGADENOSON
     Indication: Cardiac stress test
     Dosage: 0.4 MG, UNKNOWN FREQ. (DOSE ADMINISTERED OVER 10 SECONDS)
     Route: 042
     Dates: start: 20221024, end: 20221024
  5. ASPIRIN [Concomitant]
     Active Substance: ASPIRIN
     Indication: Product used for unknown indication
     Route: 065
  6. TYLENOL [Concomitant]
     Active Substance: ACETAMINOPHEN
     Indication: Product used for unknown indication
     Dosage: 500 MG, AS NEEDED (PRN)
     Route: 065

REACTIONS (1)
  - Hypotension [Recovered/Resolved]

NARRATIVE: CASE EVENT DATE: 20221024
